FAERS Safety Report 18722061 (Version 3)
Quarter: 2021Q1

REPORT INFORMATION
  Report Type: Spontaneous
  Country: IT (occurrence: IT)
  Receive Date: 20210111
  Receipt Date: 20210129
  Transmission Date: 20210419
  Serious: Yes (Other)
  Sender: FDA-Public Use
  Company Number: IT-AUROBINDO-AUR-APL-2021-000576

PATIENT
  Age: 55 Year
  Sex: Female

DRUGS (5)
  1. VALGANCICLOVIR FILM COATED TABLETS [Suspect]
     Active Substance: VALGANCICLOVIR
     Indication: CYTOMEGALOVIRUS INFECTION REACTIVATION
     Dosage: MAINTENANCE THERAPY
     Route: 065
  2. FOSCARNET [Suspect]
     Active Substance: FOSCARNET
     Indication: CYTOMEGALOVIRUS INFECTION REACTIVATION
     Dosage: RESTARTED
     Route: 065
  3. VALGANCICLOVIR FILM COATED TABLETS [Suspect]
     Active Substance: VALGANCICLOVIR
     Indication: STEM CELL TRANSPLANT
     Dosage: DOSE WAS REDUCED
     Route: 065
  4. LETERMOVIR [Concomitant]
     Active Substance: LETERMOVIR
     Indication: ANTIVIRAL PROPHYLAXIS
  5. LETERMOVIR [Concomitant]
     Active Substance: LETERMOVIR
     Indication: CYTOMEGALOVIRUS INFECTION REACTIVATION
     Dosage: UNK
     Route: 065

REACTIONS (5)
  - Drug resistance [Unknown]
  - Electrolyte imbalance [Unknown]
  - Myelosuppression [Unknown]
  - Off label use [Unknown]
  - Pathogen resistance [Unknown]
